FAERS Safety Report 23410612 (Version 1)
Quarter: 2024Q1

REPORT INFORMATION
  Report Type: Spontaneous
  Country: US (occurrence: US)
  Receive Date: 20240117
  Receipt Date: 20240117
  Transmission Date: 20240409
  Serious: No
  Sender: FDA-Public Use
  Company Number: US-SK LIFE SCIENCE, INC-SKPVG-2022-000922

PATIENT

DRUGS (1)
  1. XCOPRI [Suspect]
     Active Substance: CENOBAMATE
     Indication: Product used for unknown indication
     Route: 065

REACTIONS (1)
  - Gastrostomy [Not Recovered/Not Resolved]
